FAERS Safety Report 8024778-3 (Version None)
Quarter: 2012Q1

REPORT INFORMATION
  Report Type: 
  Country: None (occurrence: None)
  Receive Date: 20120105
  Receipt Date: 20120104
  Transmission Date: 20120608
  Serious: Yes (Death, Hospitalization)
  Sender: FDA-Public Use
  Company Number: IN-JNJFOC-20120101121

PATIENT
  Age: 68 Year
  Sex: Male

DRUGS (2)
  1. REOPRO [Suspect]
     Indication: STENT PLACEMENT
     Route: 040
     Dates: start: 20120102
  2. REOPRO [Suspect]
     Indication: ANGIOPLASTY
     Route: 040
     Dates: start: 20120102

REACTIONS (2)
  - CONDITION AGGRAVATED [None]
  - THROMBOCYTOPENIA [None]
